FAERS Safety Report 7423338-2 (Version None)
Quarter: 2011Q2

REPORT INFORMATION
  Report Type: 
  Country: None (occurrence: None)
  Receive Date: 20110419
  Receipt Date: 20110405
  Transmission Date: 20111010
  Serious: Yes (Other)
  Sender: FDA-Public Use
  Company Number: PHHY2010CA45049

PATIENT
  Sex: Male

DRUGS (3)
  1. ACLASTA [Suspect]
     Indication: ARTHRITIS
  2. ACLASTA [Suspect]
     Indication: OSTEOPOROSIS
     Dosage: 5 MG
     Dates: start: 20100630
  3. PREDNISONE [Concomitant]
     Indication: MYALGIA

REACTIONS (25)
  - LYMPHOPENIA [None]
  - TREMOR [None]
  - FEELING COLD [None]
  - RED BLOOD CELL COUNT DECREASED [None]
  - NEUTROPHIL COUNT INCREASED [None]
  - HAEMOGLOBIN DECREASED [None]
  - MUSCULOSKELETAL STIFFNESS [None]
  - MALAISE [None]
  - HYPOTENSION [None]
  - POLYCHROMASIA [None]
  - DYSSTASIA [None]
  - MICROCYTOSIS [None]
  - HYPOCHROMASIA [None]
  - BONE PAIN [None]
  - ARTHRALGIA [None]
  - RENAL IMPAIRMENT [None]
  - GLOMERULAR FILTRATION RATE DECREASED [None]
  - CHILLS [None]
  - VIRAL INFECTION [None]
  - OROPHARYNGEAL PAIN [None]
  - PAIN [None]
  - GAIT DISTURBANCE [None]
  - BLOOD CREATININE INCREASED [None]
  - LYMPHOCYTE COUNT DECREASED [None]
  - WHITE BLOOD CELL COUNT INCREASED [None]
